FAERS Safety Report 5676386-7 (Version None)
Quarter: 2008Q1

REPORT INFORMATION
  Report Type: 
  Country: None (occurrence: None)
  Receive Date: 20080321
  Receipt Date: 20080311
  Transmission Date: 20080703
  Serious: Yes (Other)
  Sender: FDA-Public Use
  Company Number: US-PFIZER INC-2008023432

PATIENT
  Sex: Male
  Weight: 83.9 kg

DRUGS (3)
  1. REVATIO [Suspect]
     Indication: PULMONARY HYPERTENSION
     Dates: start: 20080226, end: 20080307
  2. WARFARIN SODIUM [Concomitant]
  3. NONSELECTIVE ENDOTHELIN RECEPTOR ANTAGONIST [Concomitant]

REACTIONS (6)
  - COUGH [None]
  - DECREASED ACTIVITY [None]
  - DRUG INEFFECTIVE [None]
  - PAIN IN EXTREMITY [None]
  - PARAESTHESIA [None]
  - SINUS HEADACHE [None]
